FAERS Safety Report 8311621-8 (Version None)
Quarter: 2012Q2

REPORT INFORMATION
  Report Type: 
  Country: None (occurrence: None)
  Receive Date: 20120425
  Receipt Date: 20120416
  Transmission Date: 20120825
  Serious: Yes (Other)
  Sender: FDA-Public Use
  Company Number: US-ASTRAZENECA-2012SE20589

PATIENT
  Age: 59 Year
  Sex: Female

DRUGS (1)
  1. ACCOLATE [Suspect]
     Route: 048

REACTIONS (10)
  - SPINAL FRACTURE [None]
  - GAIT DISTURBANCE [None]
  - LUNG DISORDER [None]
  - INTENTIONAL DRUG MISUSE [None]
  - IMMUNODEFICIENCY [None]
  - MUSCULAR WEAKNESS [None]
  - PNEUMONIA [None]
  - MULTIPLE ALLERGIES [None]
  - RESPIRATORY DISORDER [None]
  - DEPRESSION [None]
